FAERS Safety Report 6581696-5 (Version None)
Quarter: 2010Q1

REPORT INFORMATION
  Report Type: 
  Country: None (occurrence: None)
  Receive Date: 20100211
  Receipt Date: 20100211
  Transmission Date: 20100710
  Serious: Yes (Other)
  Sender: FDA-Public Use
  Company Number: None

PATIENT
  Sex: Female
  Weight: 68.0396 kg

DRUGS (3)
  1. SUMATRIPTAN SUCCINATE [Suspect]
     Dosage: ONCE PO @ ONSET OF HEADACHE MAY REPEAT AFTER 2 HOURS DO NOT EXCEED 200MG IN 24 HOURS
     Route: 048
     Dates: start: 20080101
  2. SUMATRIPTAN SUCCINATE [Suspect]
     Dosage: AS DIRECTED
     Dates: start: 20070101, end: 20090101
  3. SUMATRIPTAN SUCCINATE [Suspect]
     Dosage: AS DIRECTED
     Dates: start: 20070101, end: 20090101

REACTIONS (6)
  - CONDITION AGGRAVATED [None]
  - DRUG INEFFECTIVE [None]
  - MIGRAINE [None]
  - PAIN [None]
  - RASH [None]
  - URTICARIA [None]
